FAERS Safety Report 18716106 (Version 1)
Quarter: 2021Q1

REPORT INFORMATION
  Report Type: Spontaneous
  Country: US (occurrence: US)
  Receive Date: 20210107
  Receipt Date: 20210107
  Transmission Date: 20210419
  Serious: Yes (Death)
  Sender: FDA-Public Use
  Company Number: None

PATIENT
  Age: 87 Year
  Sex: Male
  Weight: 63.2 kg

DRUGS (3)
  1. DEXAMETHASONE. [Concomitant]
     Active Substance: DEXAMETHASONE
     Dates: start: 20201212, end: 20201218
  2. BAMLANIVIMAB. [Suspect]
     Active Substance: BAMLANIVIMAB
     Indication: COVID-19
     Dosage: ?          OTHER FREQUENCY:ONCE;?
     Route: 040
  3. REMDESIVIR. [Concomitant]
     Active Substance: REMDESIVIR
     Dates: start: 20201212, end: 20201216

REACTIONS (4)
  - Condition aggravated [None]
  - Dementia [None]
  - Oxygen saturation decreased [None]
  - Dyspnoea [None]
